FAERS Safety Report 4610216-7 (Version None)
Quarter: 2005Q1

REPORT INFORMATION
  Report Type: 
  Country: None (occurrence: None)
  Receive Date: 20050314
  Receipt Date: 20050225
  Transmission Date: 20050727
  Serious: Yes (Death)
  Sender: FDA-Public Use
  Company Number: 2005-UK-00329UK

PATIENT
  Sex: Male

DRUGS (4)
  1. ATROVENT UDV (0015/0108) (IPRATROPIUM BROMIDE) (LOH) [Suspect]
     Route: 055
  2. SALBUTAMOL (SALBUTAMOL) [Concomitant]
  3. PERINDOPRIL (PERINDOPRIL) [Concomitant]
  4. SYMBICORT [Concomitant]

REACTIONS (1)
  - CHRONIC OBSTRUCTIVE PULMONARY DISEASE [None]
